FAERS Safety Report 5759328-5 (Version None)
Quarter: 2008Q2

REPORT INFORMATION
  Report Type: 
  Country: None (occurrence: None)
  Receive Date: 20080530
  Receipt Date: 20080515
  Transmission Date: 20081010
  Serious: Yes (Other)
  Sender: FDA-Public Use
  Company Number: MK-6037243

PATIENT
  Age: 47 Year
  Sex: Male

DRUGS (4)
  1. CIPROFLOXACIN [Suspect]
     Indication: EPIDIDYMAL INFECTION
     Dosage: 500 MG; TWICE A DAY ORAL, 500 MG; ORAL; TWICE A DAY
     Route: 048
  2. CLOZAPINE [Suspect]
     Indication: SCHIZOPHRENIA, PARANOID TYPE
     Dosage: 750 MG; DAILY, 750 MG; DAILY
  3. AMISULPRIDE (AMISULPRIDE) [Concomitant]
  4. LORAZEPAM [Concomitant]

REACTIONS (2)
  - ANTIPSYCHOTIC DRUG LEVEL THERAPEUTIC [None]
  - DRUG INTERACTION [None]
